FAERS Safety Report 24891162 (Version 2)
Quarter: 2025Q4

REPORT INFORMATION
  Report Type: Report from Study
  Country: US (occurrence: US)
  Receive Date: 20250127
  Receipt Date: 20251214
  Transmission Date: 20260117
  Serious: No
  Sender: SANOFI AVENTIS
  Company Number: US-SA-2025SA024223

PATIENT
  Age: 71 Year
  Sex: Male

DRUGS (1)
  1. DUPILUMAB [Suspect]
     Active Substance: DUPILUMAB
     Indication: Dermatitis atopic
     Dosage: 300 MG, QOW
     Route: 058

REACTIONS (3)
  - Eye disorder [Unknown]
  - Vision blurred [Unknown]
  - Rash [Not Recovered/Not Resolved]
